FAERS Safety Report 10442602 (Version 2)
Quarter: 2014Q4

REPORT INFORMATION
  Report Type: Spontaneous
  Country: US (occurrence: US)
  Receive Date: 20140909
  Receipt Date: 20141209
  Transmission Date: 20150528
  Serious: No
  Sender: FDA-Public Use
  Company Number: US-009507513-1409USA000335

PATIENT
  Age: 29 Year
  Sex: Female
  Weight: 57 kg

DRUGS (2)
  1. NEXPLANON [Suspect]
     Active Substance: ETONOGESTREL
     Dosage: 1 DF, UNK
     Route: 059
     Dates: start: 20140829, end: 20140829
  2. NEXPLANON [Suspect]
     Active Substance: ETONOGESTREL
     Dosage: 1 ROD/ THREE YEARS
     Route: 059
     Dates: start: 20140829

REACTIONS (6)
  - Medical device complication [Recovered/Resolved]
  - Wrong technique in drug usage process [Unknown]
  - Implant site oedema [Unknown]
  - Overdose [Unknown]
  - Product quality issue [Unknown]
  - No adverse event [Unknown]

NARRATIVE: CASE EVENT DATE: 20140829
